FAERS Safety Report 6543321-9 (Version None)
Quarter: 2010Q1

REPORT INFORMATION
  Report Type: 
  Country: None (occurrence: None)
  Receive Date: 20100120
  Receipt Date: 20100111
  Transmission Date: 20100710
  Serious: Yes (Other)
  Sender: FDA-Public Use
  Company Number: US-SANOFI-AVENTIS-2010SA002051

PATIENT
  Age: 45 Year
  Sex: Female

DRUGS (2)
  1. LANTUS [Suspect]
     Indication: TYPE 2 DIABETES MELLITUS
     Dosage: DOSE:70 UNIT(S)
     Route: 058
     Dates: start: 20010101
  2. OPTICLICK [Suspect]

REACTIONS (4)
  - BLINDNESS [None]
  - FALL [None]
  - HIP FRACTURE [None]
  - LOWER LIMB FRACTURE [None]
